FAERS Safety Report 7775730-4 (Version None)
Quarter: 2011Q3

REPORT INFORMATION
  Report Type: 
  Country: None (occurrence: None)
  Receive Date: 20110923
  Receipt Date: 20110920
  Transmission Date: 20111222
  Serious: Yes (Other)
  Sender: FDA-Public Use
  Company Number: NO-GLAXOSMITHKLINE-B0749307A

PATIENT
  Sex: Female

DRUGS (1)
  1. LAMICTAL [Suspect]
     Indication: DEPRESSION
     Dosage: 5MG PER DAY
     Route: 065
     Dates: start: 20110912

REACTIONS (3)
  - SPEECH DISORDER [None]
  - AMNESIA [None]
  - LOSS OF CONSCIOUSNESS [None]
